FAERS Safety Report 24005530 (Version 1)
Quarter: 2024Q2

REPORT INFORMATION
  Report Type: Spontaneous
  Country: US (occurrence: US)
  Receive Date: 20240624
  Receipt Date: 20240624
  Transmission Date: 20240715
  Serious: No
  Sender: FDA-Public Use
  Company Number: US-BAYER-2024A087062

PATIENT
  Sex: Female

DRUGS (1)
  1. CLIMARA [Suspect]
     Active Substance: ESTRADIOL
     Dosage: 25 ?G
     Route: 062
     Dates: start: 2022

REACTIONS (3)
  - Device adhesion issue [None]
  - Hot flush [None]
  - Abdominal pain upper [None]

NARRATIVE: CASE EVENT DATE: 20240101
